FAERS Safety Report 4752220-4 (Version None)
Quarter: 2005Q3

REPORT INFORMATION
  Report Type: 
  Country: None (occurrence: None)
  Receive Date: 20050825
  Receipt Date: 20050801
  Transmission Date: 20060218
  Serious: Yes (Death, Life-Threatening)
  Sender: FDA-Public Use
  Company Number: SE-SANOFI-SYNTHELABO-F01200501374

PATIENT
  Sex: Male
  Weight: 97 kg

DRUGS (2)
  1. CLOPIDOGREL [Suspect]
     Route: 048
     Dates: start: 20041105
  2. ASPIRIN [Concomitant]
     Dosage: (75-100) MG
     Route: 048

REACTIONS (20)
  - ANURIA [None]
  - BACK PAIN [None]
  - BLOOD LACTIC ACID INCREASED [None]
  - DIALYSIS [None]
  - GASTROINTESTINAL HAEMORRHAGE [None]
  - GENERAL PHYSICAL HEALTH DETERIORATION [None]
  - HAEMATOMA [None]
  - HAEMORRHAGE [None]
  - HEPATOCELLULAR DAMAGE [None]
  - HYPERTENSION [None]
  - LIVER DISORDER [None]
  - MULTI-ORGAN FAILURE [None]
  - MUSCLE NECROSIS [None]
  - RASH [None]
  - RENAL DISORDER [None]
  - SEPTIC SHOCK [None]
  - SKIN LESION [None]
  - SYSTEMIC INFLAMMATORY RESPONSE SYNDROME [None]
  - THROMBOTIC THROMBOCYTOPENIC PURPURA [None]
  - TRANSAMINASES INCREASED [None]
